FAERS Safety Report 8615943-2 (Version None)
Quarter: 2012Q3

REPORT INFORMATION
  Report Type: 
  Country: None (occurrence: None)
  Receive Date: 20120823
  Receipt Date: 20120814
  Transmission Date: 20120928
  Serious: Yes (Hospitalization)
  Sender: FDA-Public Use
  Company Number: DE-GLAXOSMITHKLINE-B0824458A

PATIENT
  Sex: Female
  Weight: 62 kg

DRUGS (7)
  1. CARBOPLATIN [Suspect]
     Indication: BREAST CANCER
     Route: 042
     Dates: start: 20120615
  2. LAPATINIB [Suspect]
     Indication: BREAST CANCER
     Dosage: 750MG PER DAY
     Route: 042
     Dates: start: 20120615
  3. LIPOSOME ENCAPSULATED DOXORUBICIN CITRATE COMPLEX [Suspect]
     Indication: BREAST CANCER
     Dosage: 20MGM2 WEEKLY
     Route: 042
     Dates: start: 20120615
  4. LOPERAMIDE [Concomitant]
  5. TRASTUZUMAB [Suspect]
     Indication: BREAST CANCER
     Dosage: 6MGK EVERY 3 WEEKS
     Route: 042
     Dates: start: 20120615
  6. PACLITAXEL [Suspect]
     Indication: BREAST CANCER
     Dosage: 80MGM2 WEEKLY
     Route: 042
     Dates: start: 20120615
  7. NEUPOGEN [Concomitant]
     Indication: PROPHYLAXIS
     Dates: start: 20120730

REACTIONS (1)
  - ANAEMIA [None]
